FAERS Safety Report 18503701 (Version 1)
Quarter: 2020Q4

REPORT INFORMATION
  Report Type: Spontaneous
  Country: DE (occurrence: DE)
  Receive Date: 20201113
  Receipt Date: 20201113
  Transmission Date: 20210114
  Serious: Yes (Life-Threatening, Hospitalization, Other)
  Sender: FDA-Public Use
  Company Number: DE-MYLANLABS-2020M1094650

PATIENT
  Age: 82 Year
  Sex: Female

DRUGS (12)
  1. PREGABALIN. [Concomitant]
     Active Substance: PREGABALIN
     Dosage: 100 MILLIGRAM, QD (100 MG, 0-0-1-0, KAPSELN)
     Route: 048
  2. MORPHIN                            /00036302/ [Concomitant]
     Active Substance: MORPHINE SULFATE
     Dosage: 10 MILLIGRAM (AS NECESSARY)
     Route: 048
  3. EPINEPHRINE. [Suspect]
     Active Substance: EPINEPHRINE
     Indication: ARTHROPOD STING
  4. CARVEDILOL. [Concomitant]
     Active Substance: CARVEDILOL
     Dosage: 12.5 MILLIGRAM, BID (25 MG, 0.5-0-0.5-0, TABLETTEN)
     Route: 048
  5. GLIMEPIRID [Concomitant]
     Active Substance: GLIMEPIRIDE
     Dosage: 2 MILLIGRAM, QD (2 MG, 1-0-0-0, TABLETTEN)
     Route: 048
  6. ZOPICLON [Concomitant]
     Active Substance: ZOPICLONE
     Dosage: 5 MILLIGRAM, QD (5 MG, 0-0-0-1, TABLETTEN)
     Route: 048
  7. SITAGLIPTIN [Concomitant]
     Active Substance: SITAGLIPTIN
     Dosage: 100 MILLIGRAM, QD (100 MG, 1-0-0-0, TABLETTEN)
     Route: 048
  8. CANDESARTAN. [Concomitant]
     Active Substance: CANDESARTAN
     Dosage: 8 MILLIGRAM, QD (16 MG, 0-0.5-0-0, TABLETTEN)
     Route: 048
  9. HYDROMORPHONE [Concomitant]
     Active Substance: HYDROMORPHONE
     Dosage: 8 MILLIGRAM, BID (8 MG, 1-0-1-0, RETARD-KAPSELN)
     Route: 048
  10. OMEPRAZOL                          /00661201/ [Concomitant]
     Active Substance: OMEPRAZOLE
     Dosage: 40 MILLIGRAM, QD (40 MG, 1-0-0-0, TABLETTEN)
     Route: 048
  11. EPINEPHRINE. [Suspect]
     Active Substance: EPINEPHRINE
     Indication: ALLERGY TO ARTHROPOD STING
     Dosage: NK MG, IF NECESSARY, AMPOULES
     Route: 058
  12. ROTIGOTINA [Concomitant]
     Active Substance: ROTIGOTINE
     Dosage: 6 MG/D, 2-0-0-0, PFLASTER TRANSDERMAL
     Route: 062

REACTIONS (7)
  - Angina pectoris [Unknown]
  - Disorientation [Unknown]
  - Tachycardia [Unknown]
  - Dysarthria [Unknown]
  - Acute myocardial infarction [Unknown]
  - Confusional state [Unknown]
  - Amnesia [Unknown]
